FAERS Safety Report 6335225-1 (Version None)
Quarter: 2009Q3

REPORT INFORMATION
  Report Type: 
  Country: None (occurrence: None)
  Receive Date: 20090831
  Receipt Date: 20090820
  Transmission Date: 20100115
  Serious: Yes (Other)
  Sender: FDA-Public Use
  Company Number: US-SANOFI-SYNTHELABO-A03200903226

PATIENT
  Sex: Female
  Weight: 54.4 kg

DRUGS (4)
  1. AMBIEN CR [Suspect]
     Indication: INSOMNIA
     Route: 048
     Dates: start: 20080801, end: 20090720
  2. AMBIEN CR [Suspect]
     Route: 048
     Dates: start: 20071001, end: 20080801
  3. ASPIRIN [Concomitant]
     Indication: SYSTEMIC LUPUS ERYTHEMATOSUS
     Dosage: ONE DAILY
     Route: 065
     Dates: start: 20051101
  4. PLAQUENIL [Concomitant]
     Indication: SYSTEMIC LUPUS ERYTHEMATOSUS
     Route: 048
     Dates: start: 20051101

REACTIONS (11)
  - ANXIETY [None]
  - DEHYDRATION [None]
  - DIARRHOEA [None]
  - DRUG INEFFECTIVE [None]
  - DRUG WITHDRAWAL SYNDROME [None]
  - MENTAL DISORDER [None]
  - PALPITATIONS [None]
  - PANIC ATTACK [None]
  - PSYCHOTIC DISORDER [None]
  - TREMOR [None]
  - VOMITING [None]
